FAERS Safety Report 14387418 (Version 3)
Quarter: 2019Q3

REPORT INFORMATION
  Report Type: Spontaneous
  Country: US (occurrence: US)
  Receive Date: 20180115
  Receipt Date: 20190812
  Transmission Date: 20191004
  Serious: Yes (Other)
  Sender: FDA-Public Use
  Company Number: US-SA-2017SA195311

PATIENT
  Age: 52 Year
  Sex: Female
  Weight: 102.2 kg

DRUGS (4)
  1. TAXOTERE [Suspect]
     Active Substance: DOCETAXEL
     Indication: BREAST CANCER FEMALE
     Dosage: UNK UNK,QW
     Route: 042
     Dates: start: 20120606, end: 20120606
  2. NEOSAR [Concomitant]
     Active Substance: CYCLOPHOSPHAMIDE
     Indication: BREAST CANCER FEMALE
     Dosage: UNK
     Route: 065
  3. CYTOXAN [Concomitant]
     Active Substance: CYCLOPHOSPHAMIDE
     Indication: BREAST CANCER FEMALE
  4. TAXOTERE [Suspect]
     Active Substance: DOCETAXEL
     Dosage: UNK UNK,QW
     Route: 042
     Dates: start: 20120821, end: 20120821

REACTIONS (6)
  - Impaired quality of life [Unknown]
  - Alopecia [Recovering/Resolving]
  - Pain [Unknown]
  - Anxiety [Unknown]
  - Psychological trauma [Unknown]
  - Emotional distress [Unknown]

NARRATIVE: CASE EVENT DATE: 20120821
